FAERS Safety Report 21122271 (Version 1)
Quarter: 2022Q3

REPORT INFORMATION
  Report Type: Spontaneous
  Country: US (occurrence: US)
  Receive Date: 20220723
  Receipt Date: 20220723
  Transmission Date: 20221027
  Serious: No
  Sender: FDA-Public Use
  Company Number: US-BRISTOL-MYERS SQUIBB COMPANY-2022-074641

PATIENT
  Age: 46 Year
  Sex: Male

DRUGS (1)
  1. LENALIDOMIDE [Suspect]
     Active Substance: LENALIDOMIDE
     Indication: Product used for unknown indication
     Dosage: DOSE- 2 CAPSULE?UNIT- 5MG?FREQ- DAILY 28 DAYS
     Route: 048
     Dates: start: 20150915

REACTIONS (1)
  - Sinus congestion [Recovered/Resolved]
